FAERS Safety Report 6771407-2 (Version None)
Quarter: 2010Q2

REPORT INFORMATION
  Report Type: 
  Country: None (occurrence: None)
  Receive Date: 20100616
  Receipt Date: 20100607
  Transmission Date: 20101027
  Serious: Yes (Hospitalization)
  Sender: FDA-Public Use
  Company Number: AT-AMGEN-KDC411178

PATIENT
  Sex: Male

DRUGS (14)
  1. PANITUMUMAB [Suspect]
     Indication: SQUAMOUS CELL CARCINOMA
     Dates: start: 20100427
  2. DOCETAXEL [Suspect]
     Route: 042
     Dates: start: 20100427
  3. CISPLATIN [Suspect]
     Route: 042
     Dates: start: 20100427
  4. TAMSULOSIN HCL [Concomitant]
     Dates: start: 20100426
  5. VOLTAREN [Concomitant]
     Dates: start: 20100426, end: 20100428
  6. TRAZODONE HCL [Concomitant]
     Dates: start: 20100426
  7. PULMICORT [Concomitant]
     Dates: start: 20100427, end: 20100517
  8. DURAGESIC-100 [Concomitant]
     Dates: start: 20100428
  9. FORTECORTIN [Concomitant]
     Dates: start: 20100426, end: 20100522
  10. EFFORTIL [Concomitant]
     Dates: start: 20100426, end: 20100428
  11. ZOFRAN [Concomitant]
     Dates: start: 20100426, end: 20100517
  12. NEULASTA [Concomitant]
     Dates: start: 20100428, end: 20100428
  13. EMEND [Concomitant]
     Dates: start: 20100427, end: 20100522
  14. DOMINAL [Concomitant]
     Dates: start: 20100426

REACTIONS (3)
  - ASTHENIA [None]
  - DIARRHOEA [None]
  - STERNAL FRACTURE [None]
